FAERS Safety Report 17464578 (Version 1)
Quarter: 2020Q1

REPORT INFORMATION
  Report Type: Spontaneous
  Country: GB (occurrence: GB)
  Receive Date: 20200226
  Receipt Date: 20200226
  Transmission Date: 20200409
  Serious: Yes (Hospitalization)
  Sender: FDA-Public Use
  Company Number: NVSC2020GB046482

PATIENT
  Sex: Male

DRUGS (6)
  1. TRAMADOL. [Suspect]
     Active Substance: TRAMADOL
     Indication: PRODUCT USED FOR UNKNOWN INDICATION
     Dosage: 50 MG, QD (TRAMADOL 50 MG UNKNOWN)
     Route: 065
  2. BISOPROLOL [Suspect]
     Active Substance: BISOPROLOL
     Indication: PRODUCT USED FOR UNKNOWN INDICATION
     Dosage: 2.5 MG, QD (BISOPROLOL 2.5 MG UNKNOWN)
     Route: 065
  3. TRAMADOL. [Suspect]
     Active Substance: TRAMADOL
     Dosage: 100 MG, QD (TRAMADOL 100 MG UNKNOWN)
     Route: 065
  4. ALFUWIN [Suspect]
     Active Substance: ALFUZOSIN HYDROCHLORIDE
     Indication: PRODUCT USED FOR UNKNOWN INDICATION
     Dosage: 10 MG, QD (ALFUNZOSIN 10 MG UNKNOWN)
     Route: 065
  5. LANSOPRAZOLE. [Suspect]
     Active Substance: LANSOPRAZOLE
     Indication: PRODUCT USED FOR UNKNOWN INDICATION
     Dosage: 15 MG, QD (LANSOPRAZOLE 15 MG UNKNOWN)
     Route: 065
  6. DUTASTERIDE. [Suspect]
     Active Substance: DUTASTERIDE
     Indication: PRODUCT USED FOR UNKNOWN INDICATION
     Dosage: 500 UG, QD (DUTASTERIDE 500 MCG UNKNOWN)
     Route: 065

REACTIONS (3)
  - Drug dispensed to wrong patient [Unknown]
  - Malaise [Unknown]
  - Wrong product administered [Unknown]
